FAERS Safety Report 4654072-X (Version None)
Quarter: 2005Q2

REPORT INFORMATION
  Report Type: 
  Country: None (occurrence: None)
  Receive Date: 20050504
  Receipt Date: 20050419
  Transmission Date: 20051028
  Serious: Yes (Other)
  Sender: FDA-Public Use
  Company Number: DSA_26353_2005

PATIENT
  Age: 72 Year
  Sex: Male

DRUGS (3)
  1. MONO-TILDIEM [Suspect]
     Indication: ESSENTIAL HYPERTENSION
     Dosage: 200 MG Q DAY PO
     Route: 048
     Dates: start: 20020728, end: 20050403
  2. ASPEGIC 1000 [Concomitant]
  3. COZAAR [Concomitant]

REACTIONS (1)
  - HEPATITIS [None]
